APPROVED DRUG PRODUCT: DEXTROSE 50% IN PLASTIC CONTAINER
Active Ingredient: DEXTROSE
Strength: 50GM/100ML
Dosage Form/Route: INJECTABLE;INJECTION
Application: N019894 | Product #001
Applicant: ICU MEDICAL INC
Approved: Dec 26, 1989 | RLD: No | RS: No | Type: DISCN